FAERS Safety Report 6866061-5 (Version None)
Quarter: 2010Q3

REPORT INFORMATION
  Report Type: 
  Country: None (occurrence: None)
  Receive Date: 20100722
  Receipt Date: 20100702
  Transmission Date: 20110219
  Serious: No
  Sender: FDA-Public Use
  Company Number: HU-BAYER-201015384GPV

PATIENT
  Sex: Female

DRUGS (1)
  1. MIRENA [Suspect]
     Indication: CONTRACEPTION
     Route: 015
     Dates: start: 20090201, end: 20090301

REACTIONS (1)
  - DEPRESSION [None]
